FAERS Safety Report 6423539-6 (Version None)
Quarter: 2009Q4

REPORT INFORMATION
  Report Type: 
  Country: None (occurrence: None)
  Receive Date: 20091102
  Receipt Date: 20090428
  Transmission Date: 20100525
  Serious: Yes (Other)
  Sender: FDA-Public Use
  Company Number: A0781287A

PATIENT

DRUGS (3)
  1. RYTHMOL SR [Suspect]
     Indication: ATRIAL FIBRILLATION
     Dosage: 225MG TWICE PER DAY
     Route: 048
  2. PROPRANOLOL [Concomitant]
  3. ASPIRIN [Concomitant]

REACTIONS (1)
  - BLOOD BILIRUBIN INCREASED [None]
